FAERS Safety Report 22737362 (Version 3)
Quarter: 2023Q4

REPORT INFORMATION
  Report Type: Spontaneous
  Country: JP (occurrence: None)
  Receive Date: 20230721
  Receipt Date: 20231004
  Transmission Date: 20240109
  Serious: No
  Sender: FDA-Public Use
  Company Number: 2023A158523

PATIENT
  Age: 18175 Day
  Sex: Male
  Weight: 56 kg

DRUGS (13)
  1. DAPAGLIFLOZIN [Suspect]
     Active Substance: DAPAGLIFLOZIN
     Indication: Cardiac failure chronic
     Route: 048
     Dates: start: 20230424
  2. ASPIRIN [Concomitant]
     Active Substance: ASPIRIN
     Indication: Myocardial ischaemia
     Route: 048
     Dates: start: 20230423
  3. ROSUVASTATIN [Concomitant]
     Active Substance: ROSUVASTATIN
     Indication: Myocardial ischaemia
     Route: 048
     Dates: start: 20230423
  4. LOSARTAN POTASSIUM [Concomitant]
     Active Substance: LOSARTAN POTASSIUM
     Indication: Cardiac failure chronic
     Route: 048
     Dates: start: 20230425
  5. DOBUTAMINE [Concomitant]
     Active Substance: DOBUTAMINE HYDROCHLORIDE
     Indication: Cardiac failure chronic
     Dosage: DOSE UNKNOWN, ADJUST ACCORDINGLY AS REQUIRED
     Route: 041
     Dates: start: 20230423
  6. CARPERITIDE [Concomitant]
     Active Substance: CARPERITIDE
     Indication: Cardiac failure chronic
     Dosage: DOSE UNKNOWN, ADJUST ACCORDINGLY AS REQUIRED
     Route: 041
     Dates: start: 20230423, end: 20230424
  7. NOVORAPID [Concomitant]
     Active Substance: INSULIN ASPART
     Indication: Type 2 diabetes mellitus
     Dosage: 4 IU BEFORE LUNCH AND DINNER EACH, SLIDING
     Route: 058
     Dates: start: 20230424, end: 20230424
  8. NOVORAPID [Concomitant]
     Active Substance: INSULIN ASPART
     Indication: Type 2 diabetes mellitus
     Dosage: 4 IU BEFORE LUNCH AND DINNER EACH, SLIDING
     Route: 058
     Dates: start: 20230425, end: 20230425
  9. NOVORAPID [Concomitant]
     Active Substance: INSULIN ASPART
     Indication: Type 2 diabetes mellitus
     Dosage: 6 IU BEFORE BREAKFAST, 4 IU BEFORE LUNCH AND DINNER EACH, SLIDING
     Route: 058
     Dates: start: 20230426, end: 20230427
  10. NOVORAPID [Concomitant]
     Active Substance: INSULIN ASPART
     Indication: Type 2 diabetes mellitus
     Dosage: 6 IU BEFORE BREAKFAST, 4 IU BEFORE LUNCH AND DINNER EACH, SLIDING
     Route: 058
     Dates: start: 20230429, end: 20230430
  11. NOVORAPID [Concomitant]
     Active Substance: INSULIN ASPART
     Indication: Type 2 diabetes mellitus
     Dosage: DOSE UNKNOWN, SLIDING
     Route: 058
     Dates: start: 20230501, end: 20230510
  12. HUMULIN R [Concomitant]
     Active Substance: INSULIN HUMAN
     Indication: Type 2 diabetes mellitus
     Dosage: 4 IU BEFORE BREAKFAST, SLIDING
     Route: 058
     Dates: start: 20230423, end: 20230423
  13. HUMULIN R [Concomitant]
     Active Substance: INSULIN HUMAN
     Indication: Type 2 diabetes mellitus
     Dosage: 3 IU BEFORE BREAKFAST, SLIDING
     Route: 058
     Dates: start: 20230424, end: 20230424

REACTIONS (1)
  - Ketosis [Recovering/Resolving]

NARRATIVE: CASE EVENT DATE: 20230424
